FAERS Safety Report 8059647-6 (Version None)
Quarter: 2012Q1

REPORT INFORMATION
  Report Type: 
  Country: None (occurrence: None)
  Receive Date: 20120120
  Receipt Date: 20120114
  Transmission Date: 20120608
  Serious: Yes (Death)
  Sender: FDA-Public Use
  Company Number: PHHY2012FR004420

PATIENT
  Age: 74 Year
  Sex: Male

DRUGS (3)
  1. TERBINAFINE HCL [Suspect]
     Indication: FUSARIUM INFECTION
  2. VORICONAZOLE [Suspect]
     Indication: FUSARIUM INFECTION
  3. CASPOFUNGIN ACETATE [Suspect]
     Indication: ASPERGILLOSIS

REACTIONS (2)
  - TREATMENT FAILURE [None]
  - FUSARIUM INFECTION [None]
